FAERS Safety Report 17391415 (Version 1)
Quarter: 2020Q1

REPORT INFORMATION
  Report Type: Spontaneous
  Country: US (occurrence: US)
  Receive Date: 20200207
  Receipt Date: 20200207
  Transmission Date: 20200409
  Serious: Yes (Hospitalization)
  Sender: FDA-Public Use
  Company Number: US-EMCURE PHARMACEUTICALS LTD-2020-EPL-0088

PATIENT
  Age: 60 Year
  Sex: Female

DRUGS (7)
  1. ACARBOSE. [Suspect]
     Active Substance: ACARBOSE
     Indication: POSTPRANDIAL HYPOGLYCAEMIA
     Dosage: 25 MILLIGRAM BEFORE EACH OF HER 6 MEALS PER DAY
  2. ACARBOSE. [Suspect]
     Active Substance: ACARBOSE
     Indication: HYPERINSULINAEMIC HYPOGLYCAEMIA
  3. MULTIVITAMINS                      /00116001/ [Concomitant]
     Active Substance: VITAMINS
     Indication: SUPPLEMENTATION THERAPY
  4. VITAMIN B12 [Concomitant]
     Active Substance: CYANOCOBALAMIN
     Indication: SUPPLEMENTATION THERAPY
  5. IRON AND VITAMIN C [Concomitant]
     Indication: SUPPLEMENTATION THERAPY
  6. CALCIUM [Concomitant]
     Active Substance: CALCIUM
     Indication: SUPPLEMENTATION THERAPY
  7. VITAMIN D                          /00107901/ [Concomitant]
     Active Substance: ERGOCALCIFEROL
     Indication: SUPPLEMENTATION THERAPY

REACTIONS (3)
  - Off label use [Unknown]
  - Diarrhoea [Unknown]
  - Dehydration [Unknown]
